FAERS Safety Report 25450511 (Version 1)
Quarter: 2025Q2

REPORT INFORMATION
  Report Type: Spontaneous
  Country: SE (occurrence: SE)
  Receive Date: 20250618
  Receipt Date: 20250618
  Transmission Date: 20250717
  Serious: Yes (Hospitalization, Other)
  Sender: GRANULES PHARMACEUTICALS INC
  Company Number: SE-GRANULES-SE-2025GRALIT00321

PATIENT
  Age: 15 Year
  Sex: Female

DRUGS (4)
  1. SERTRALINE HYDROCHLORIDE [Suspect]
     Active Substance: SERTRALINE HYDROCHLORIDE
     Indication: Depression
     Route: 065
  2. FLUOXETINE [Suspect]
     Active Substance: FLUOXETINE HYDROCHLORIDE
     Indication: Anxiety
     Route: 065
  3. PROPIOMAZINE [Concomitant]
     Active Substance: PROPIOMAZINE
     Route: 065
  4. PROMETHAZINE [Concomitant]
     Active Substance: PROMETHAZINE HYDROCHLORIDE
     Route: 065

REACTIONS (6)
  - Suicidal ideation [Recovered/Resolved]
  - Bipolar II disorder [Recovered/Resolved]
  - Psychomotor hyperactivity [Recovered/Resolved]
  - Borderline personality disorder [Recovered/Resolved]
  - Intentional self-injury [Recovered/Resolved]
  - Drug ineffective [Unknown]
